FAERS Safety Report 7923462-1 (Version None)
Quarter: 2011Q4

REPORT INFORMATION
  Report Type: 
  Country: None (occurrence: None)
  Receive Date: 20111117
  Receipt Date: 20110203
  Transmission Date: 20120403
  Serious: No
  Sender: FDA-Public Use
  Company Number: US-AMGEN-USASP2011006675

PATIENT
  Age: 66 Year
  Sex: Male

DRUGS (7)
  1. OMEPRAZOLE [Concomitant]
     Dosage: 20 MG, UNK
  2. ENBREL [Suspect]
     Indication: PRODUCT USED FOR UNKNOWN INDICATION
     Dosage: 50 MG, QWK
     Route: 058
  3. ASPIRIN [Concomitant]
     Dosage: 81 MG, UNK
  4. CLOBEX                           /00012002/ [Concomitant]
     Dosage: 0.05 %, UNK
  5. INDOMETHACIN [Concomitant]
     Dosage: 25 MG, UNK
  6. LABETALOL HCL [Concomitant]
     Dosage: 100 MG, UNK
  7. CHLORTHALIDONE [Concomitant]
     Dosage: 25 MG, UNK

REACTIONS (1)
  - THERAPEUTIC RESPONSE DECREASED [None]
